FAERS Safety Report 17235620 (Version 2)
Quarter: 2020Q1

REPORT INFORMATION
  Report Type: Spontaneous
  Country: US (occurrence: US)
  Receive Date: 20200106
  Receipt Date: 20200117
  Transmission Date: 20200409
  Serious: Yes (Hospitalization, Other)
  Sender: FDA-Public Use
  Company Number: US-DRREDDYS-USA/USA/20/0118175

PATIENT
  Age: 41 Year
  Sex: Female

DRUGS (9)
  1. FENTANYL CITRATE. [Suspect]
     Active Substance: FENTANYL CITRATE
     Indication: NEURALGIA
     Dosage: AT THE BASAL RATE OF 25 MICROG/HR BASAL RATE WITH BOLUS DOSE OF 25 MCG IV Q 10 MIN
     Route: 042
  2. HYDROMORPHONE [Suspect]
     Active Substance: HYDROMORPHONE
     Indication: NEURALGIA
     Dosage: 0.3MG EVERY 10 MINUTES AT HOSPITAL
  3. MORPHINE [Suspect]
     Active Substance: MORPHINE
     Dosage: 15 MG TABLETS 3-4 TABLETS DAILY
     Route: 048
  4. METHADONE [Suspect]
     Active Substance: METHADONE HYDROCHLORIDE
     Indication: NEURALGIA
  5. OLANZAPINE TABLETS 2.5 MG, 5 MG, 7.5 MG, 10 MG [Suspect]
     Active Substance: OLANZAPINE
     Indication: ANXIETY
     Dosage: AT BEDTIME
  6. FENTANYL CITRATE. [Suspect]
     Active Substance: FENTANYL CITRATE
     Dosage: 0.3 MG IV Q 10 MIN WITH NO BASAL RATE
     Route: 042
  7. MORPHINE [Suspect]
     Active Substance: MORPHINE
     Indication: NEURALGIA
     Route: 048
  8. OLANZAPINE TABLETS 2.5 MG, 5 MG, 7.5 MG, 10 MG [Suspect]
     Active Substance: OLANZAPINE
     Indication: INSOMNIA
  9. LORAZEPAM INJECTION USP, 2 MG/ML AND 4 MG/ML [Suspect]
     Active Substance: LORAZEPAM
     Indication: AGITATION

REACTIONS (3)
  - Constipation [Unknown]
  - Neurotoxicity [Unknown]
  - Pain [Unknown]
